FAERS Safety Report 20151717 (Version 1)
Quarter: 2021Q4

REPORT INFORMATION
  Report Type: Spontaneous
  Country: US (occurrence: US)
  Receive Date: 20211206
  Receipt Date: 20211206
  Transmission Date: 20220303
  Serious: No
  Sender: FDA-Public Use
  Company Number: US-HARMONY BIOSCIENCES-2021HMY01667

PATIENT
  Sex: Female
  Weight: 78.005 kg

DRUGS (10)
  1. WAKIX [Suspect]
     Active Substance: PITOLISANT HYDROCHLORIDE
     Indication: Narcolepsy
     Dosage: 4.45 MG, 1X/DAY FOR ONE WEEK
     Route: 048
     Dates: start: 20210818, end: 20210824
  2. WAKIX [Suspect]
     Active Substance: PITOLISANT HYDROCHLORIDE
     Indication: Somnolence
     Dosage: ^8.8 MG,^ 1X/DAY
     Route: 048
     Dates: start: 20210825, end: 202109
  3. WAKIX [Suspect]
     Active Substance: PITOLISANT HYDROCHLORIDE
     Dosage: ^8.8 MG,^ 1X/DAY
     Route: 048
     Dates: start: 202109
  4. WAKIX [Suspect]
     Active Substance: PITOLISANT HYDROCHLORIDE
     Indication: Narcolepsy
     Dosage: 17.8 MG, 1X/DAY IN THE AM
     Route: 048
     Dates: start: 202109, end: 202109
  5. WAKIX [Suspect]
     Active Substance: PITOLISANT HYDROCHLORIDE
     Indication: Somnolence
     Dosage: 17.8 MG, 1X/DAY IN THE AM
     Route: 048
     Dates: start: 202109, end: 202109
  6. PROVIGIL [Suspect]
     Active Substance: MODAFINIL
     Dosage: UNK, 2X/DAY
     Dates: end: 202108
  7. PROVIGIL [Suspect]
     Active Substance: MODAFINIL
     Dosage: UNK, 1X/DAY IN THE MORNING
     Dates: start: 202108
  8. VITAMINS [Concomitant]
     Active Substance: VITAMINS
  9. SODIUM STOOL SOFTENER [Concomitant]
  10. ^URAVEL^ [Concomitant]
     Dosage: UNK, AS NEEDED

REACTIONS (7)
  - Hallucination, auditory [Unknown]
  - Hallucination, visual [Unknown]
  - Sleep paralysis [Unknown]
  - Nausea [Recovered/Resolved]
  - Abnormal dreams [Unknown]
  - Anxiety [Unknown]
  - Product dose omission issue [Recovered/Resolved]

NARRATIVE: CASE EVENT DATE: 20210101
